FAERS Safety Report 6409665-6 (Version None)
Quarter: 2009Q4

REPORT INFORMATION
  Report Type: 
  Country: None (occurrence: None)
  Receive Date: 20091021
  Receipt Date: 20091021
  Transmission Date: 20100525
  Serious: No
  Sender: FDA-Public Use
  Company Number: None

PATIENT
  Age: 18 Year
  Sex: Male
  Weight: 58.9676 kg

DRUGS (1)
  1. SOLODYN [Suspect]
     Indication: ACNE
     Dosage: 90 MG TABLET ONCE A DAY PO
     Route: 048
     Dates: start: 20080901, end: 20091001

REACTIONS (1)
  - ARTHRALGIA [None]
